FAERS Safety Report 25184358 (Version 1)
Quarter: 2025Q2

REPORT INFORMATION
  Report Type: Spontaneous
  Country: DE (occurrence: DE)
  Receive Date: 20250410
  Receipt Date: 20250410
  Transmission Date: 20250716
  Serious: Yes (Congenital Anomaly, Other)
  Sender: TEVA
  Company Number: DE-EMB-M202310024-1

PATIENT
  Sex: Female
  Weight: 2.84 kg

DRUGS (9)
  1. VENLAFAXINE [Suspect]
     Active Substance: VENLAFAXINE HYDROCHLORIDE
     Indication: Panic disorder
     Route: 064
     Dates: start: 202306, end: 202402
  2. PIPAMPERONE [Suspect]
     Active Substance: PIPAMPERONE
     Indication: Panic disorder
     Route: 064
     Dates: start: 202306, end: 202307
  3. AMOXICILLIN\CLAVULANATE POTASSIUM [Concomitant]
     Active Substance: AMOXICILLIN\CLAVULANATE POTASSIUM
     Indication: Pyelonephritis
     Dosage: DOSE (NUMBER): 875/125 MG
     Route: 064
     Dates: start: 202311, end: 202312
  4. METOPROLOL [Concomitant]
     Active Substance: METOPROLOL
     Indication: Gestational hypertension
     Route: 064
     Dates: start: 202402, end: 202402
  5. UNSPECIFIED INGREDIENT [Concomitant]
     Active Substance: UNSPECIFIED INGREDIENT
     Indication: Pyelonephritis
     Route: 064
     Dates: start: 202312, end: 202402
  6. PROMETHAZINE [Concomitant]
     Active Substance: PROMETHAZINE HYDROCHLORIDE
     Indication: Panic disorder
     Route: 064
     Dates: start: 202401, end: 202402
  7. MIRTAZAPINE [Concomitant]
     Active Substance: MIRTAZAPINE
     Indication: Sleep disorder
     Dosage: UNKNOWN UNTIL WHEN, CONFLICTING REPORTS
     Route: 064
     Dates: start: 202311, end: 202311
  8. TAVOR (LORAZEPAM) [Suspect]
     Active Substance: LORAZEPAM
     Indication: Panic disorder
     Route: 064
     Dates: start: 202307, end: 202401
  9. PENICILLIN [Concomitant]
     Active Substance: PENICILLIN
     Indication: Pyelonephritis
     Route: 064
     Dates: start: 202311, end: 202311

REACTIONS (2)
  - Cardiac septal defect [Unknown]
  - Foetal exposure during pregnancy [Unknown]
